FAERS Safety Report 10246479 (Version 1)
Quarter: 2014Q2

REPORT INFORMATION
  Report Type: Spontaneous
  Country: GB (occurrence: GB)
  Receive Date: 20140619
  Receipt Date: 20140619
  Transmission Date: 20141212
  Serious: Yes (Hospitalization)
  Sender: FDA-Public Use
  Company Number: GB-JNJFOC-20140610793

PATIENT
  Age: 90 Year
  Sex: Male
  Weight: 86 kg

DRUGS (8)
  1. XARELTO [Suspect]
     Indication: PRODUCT USED FOR UNKNOWN INDICATION
     Route: 048
     Dates: start: 20140331
  2. ASPIRIN [Concomitant]
     Route: 065
     Dates: start: 20140304, end: 20140401
  3. SIMVASTATIN [Concomitant]
     Route: 065
     Dates: start: 20140317, end: 20140513
  4. HYDROXOCOBALAMIN [Concomitant]
     Route: 065
     Dates: start: 20140401
  5. CO-AMILOFRUSE [Concomitant]
     Route: 065
     Dates: start: 20140317, end: 20140513
  6. AMIODARONE [Concomitant]
     Route: 065
     Dates: start: 20140304, end: 20140519
  7. BISOPROLOL [Concomitant]
     Route: 065
     Dates: start: 20140317, end: 20140513
  8. GLYCERYL TRINITRATE [Concomitant]
     Route: 065
     Dates: start: 20140317, end: 20140414

REACTIONS (2)
  - Haematuria [Recovered/Resolved]
  - Prescribed overdose [Unknown]
